FAERS Safety Report 11508403 (Version 1)
Quarter: 2015Q3

REPORT INFORMATION
  Report Type: Spontaneous
  Country: CA (occurrence: CA)
  Receive Date: 20150915
  Receipt Date: 20150915
  Transmission Date: 20151125
  Serious: Yes (Death)
  Sender: FDA-Public Use
  Company Number: CA-TEVA-592793ACC

PATIENT
  Age: 44 Year
  Sex: Male
  Weight: 78 kg

DRUGS (3)
  1. RATIO-EMTEC-30 [Suspect]
     Active Substance: ACETAMINOPHEN\CODEINE PHOSPHATE
     Indication: MUSCULOSKELETAL DISORDER
     Route: 065
  2. MYLAN-CYCLOBENZAPRINE [Suspect]
     Active Substance: CYCLOBENZAPRINE
     Indication: MUSCULOSKELETAL DISORDER
     Route: 065
  3. NAPROSYN [Concomitant]
     Active Substance: NAPROXEN

REACTIONS (6)
  - Confusional state [Fatal]
  - Hypothermia [Fatal]
  - Abnormal behaviour [Fatal]
  - Mental disorder [Fatal]
  - Hallucination [Fatal]
  - Drug level increased [Fatal]
